FAERS Safety Report 4335371-8 (Version None)
Quarter: 2004Q2

REPORT INFORMATION
  Report Type: 
  Country: None (occurrence: None)
  Receive Date: 20040408
  Receipt Date: 20040408
  Transmission Date: 20050107
  Serious: No
  Sender: FDA-Public Use
  Company Number: None

PATIENT
  Age: 36 Year
  Sex: Female
  Weight: 93 kg

DRUGS (8)
  1. NEXIUM [Suspect]
     Indication: GASTROOESOPHAGEAL REFLUX DISEASE
     Dosage: 2 UMG PO Q DAY
     Route: 048
  2. PREDNISONE [Concomitant]
  3. ALBUTEROL [Concomitant]
  4. GUAIFENESIN [Concomitant]
  5. KETOCONAZOLE [Concomitant]
  6. FEXOFENADINE HCL [Concomitant]
  7. FLUTICASONE PROPIONATE [Concomitant]
  8. SALMETEROL [Concomitant]

REACTIONS (6)
  - ALANINE AMINOTRANSFERASE INCREASED [None]
  - ASPARTATE AMINOTRANSFERASE INCREASED [None]
  - BLOOD ALKALINE PHOSPHATASE INCREASED [None]
  - BLOOD BILIRUBIN INCREASED [None]
  - CHROMATURIA [None]
  - OCULAR ICTERUS [None]
